FAERS Safety Report 5838725-3 (Version None)
Quarter: 2008Q3

REPORT INFORMATION
  Report Type: 
  Country: None (occurrence: None)
  Receive Date: 20080808
  Receipt Date: 20080730
  Transmission Date: 20090109
  Serious: Yes (Other)
  Sender: FDA-Public Use
  Company Number: B0532310A

PATIENT
  Age: 24 Year
  Sex: Female

DRUGS (8)
  1. AMOXICILLIN AND CLAVULANATE POTASSIUM [Suspect]
     Indication: URINARY TRACT INFECTION
  2. RANITIDINE HCL [Suspect]
  3. TOPICAL CORTICOSTEROID [Suspect]
     Route: 061
  4. METHYLPREDNISOLONE [Suspect]
     Route: 048
  5. BETAMETHASONE BENZOATE [Suspect]
     Route: 061
  6. VASELINE [Suspect]
     Route: 061
  7. ZINC OXIDE [Suspect]
     Route: 061
  8. OXATOMIDE [Suspect]
     Route: 048

REACTIONS (3)
  - DRUG EXPOSURE DURING PREGNANCY [None]
  - LIVE BIRTH [None]
  - PREMATURE RUPTURE OF MEMBRANES [None]
